FAERS Safety Report 23995747 (Version 2)
Quarter: 2024Q4

REPORT INFORMATION
  Report Type: Spontaneous
  Country: NL (occurrence: NL)
  Receive Date: 20240620
  Receipt Date: 20241218
  Transmission Date: 20250115
  Serious: Yes (Hospitalization, Other)
  Sender: PURDUE
  Company Number: NL-STADA-01250414

PATIENT
  Age: 15 Year
  Sex: Female
  Weight: 34.5 kg

DRUGS (20)
  1. MORPHINE SULFATE [Interacting]
     Active Substance: MORPHINE SULFATE
     Indication: Analgesic therapy
     Dosage: 4 MILLIGRAM
     Route: 042
     Dates: start: 2022, end: 2022
  2. MORPHINE SULFATE [Interacting]
     Active Substance: MORPHINE SULFATE
     Dosage: 5 MCG/KG/H
     Route: 050
     Dates: start: 2022, end: 2022
  3. MORPHINE SULFATE [Interacting]
     Active Substance: MORPHINE SULFATE
     Dosage: 5 MCG/KG/H
     Route: 042
  4. MORPHINE SULFATE [Interacting]
     Active Substance: MORPHINE SULFATE
     Indication: Analgesic therapy
     Dosage: 4 MILLIGRAM
     Route: 042
     Dates: start: 2022, end: 2022
  5. MORPHINE SULFATE [Interacting]
     Active Substance: MORPHINE SULFATE
     Dosage: 5 MCG/KG/H
     Route: 050
     Dates: start: 2022, end: 2022
  6. MORPHINE SULFATE [Interacting]
     Active Substance: MORPHINE SULFATE
     Dosage: 5 MCG/KG/H
     Route: 042
  7. TRAMADOL [Interacting]
     Active Substance: TRAMADOL
     Indication: Pain
     Dosage: 35 MILLIGRAM, DAILY
     Route: 048
     Dates: start: 2022, end: 2022
  8. BACLOFEN [Interacting]
     Active Substance: BACLOFEN
     Indication: Cerebral palsy
     Dosage: PUMP
     Route: 037
  9. BACLOFEN [Interacting]
     Active Substance: BACLOFEN
     Dosage: PUMP
     Route: 037
  10. BACLOFEN [Interacting]
     Active Substance: BACLOFEN
     Dosage: PUMP
     Route: 037
  11. BACLOFEN [Interacting]
     Active Substance: BACLOFEN
     Dosage: PUMP
     Route: 037
  12. BACLOFEN [Interacting]
     Active Substance: BACLOFEN
     Dosage: FLEXIBLE PROGRAM WITH FOUR BOLUSES (OF 30, 105, 80, AND 105 MCG) A DAY
     Route: 037
  13. BACLOFEN [Interacting]
     Active Substance: BACLOFEN
     Dosage: 507 MCG/DL (4 Y) ((ORALLY, 5 MG 3 DD WHEN NEEDED)
     Route: 037
  14. GLYCOPYRRONIUM [Concomitant]
     Active Substance: GLYCOPYRRONIUM
     Indication: Product used for unknown indication
     Dosage: 1,280 ?G, 2 DD
     Route: 065
  15. ACETAMINOPHEN [Concomitant]
     Active Substance: ACETAMINOPHEN
     Indication: Analgesic therapy
     Dosage: UNK
     Route: 042
  16. VALPROIC ACID [Concomitant]
     Active Substance: VALPROIC ACID
     Indication: Epilepsy
     Dosage: 500 MG, 2 DD
     Route: 065
  17. APREPITANT [Concomitant]
     Active Substance: APREPITANT
     Indication: Product used for unknown indication
     Dosage: 80MG 1 DD
     Route: 065
  18. OMEPRAZOLE [Concomitant]
     Active Substance: OMEPRAZOLE
     Indication: Product used for unknown indication
     Dosage: 20MG, 2 DD
     Route: 065
  19. PERAMPANEL [Concomitant]
     Active Substance: PERAMPANEL
     Indication: Epilepsy
     Dosage: 4MG 1 DD
     Route: 065
  20. BACLOFEN [Concomitant]
     Active Substance: BACLOFEN
     Indication: Product used for unknown indication
     Dosage: ORALLY, 5MG 3 DD WHEN NEEDED
     Route: 048

REACTIONS (2)
  - Drug interaction [Recovered/Resolved]
  - Apnoea [Recovering/Resolving]

NARRATIVE: CASE EVENT DATE: 20220101
